FAERS Safety Report 7671545-6 (Version None)
Quarter: 2011Q3

REPORT INFORMATION
  Report Type: 
  Country: None (occurrence: None)
  Receive Date: 20110809
  Receipt Date: 20110809
  Transmission Date: 20111222
  Serious: Yes (Hospitalization)
  Sender: FDA-Public Use
  Company Number: None

PATIENT
  Sex: Female
  Weight: 70.45 kg

DRUGS (1)
  1. HURRICAINE [Suspect]
     Indication: ANAESTHESIA
     Route: 049
     Dates: start: 20110715, end: 20110715

REACTIONS (1)
  - METHAEMOGLOBINAEMIA [None]
